FAERS Safety Report 4802199-1 (Version None)
Quarter: 2005Q4

REPORT INFORMATION
  Report Type: 
  Country: None (occurrence: None)
  Receive Date: 20051017
  Receipt Date: 20051017
  Transmission Date: 20060501
  Serious: Yes (Other)
  Sender: FDA-Public Use
  Company Number: None

PATIENT
  Age: 27 Year
  Sex: Female
  Weight: 55.9739 kg

DRUGS (1)
  1. YASMIN [Suspect]
     Indication: CONTRACEPTION
     Dosage: PO
     Route: 048

REACTIONS (6)
  - DYSPNOEA [None]
  - FEAR [None]
  - FLUSHING [None]
  - MYDRIASIS [None]
  - PANIC ATTACK [None]
  - TENSION [None]
